FAERS Safety Report 9018758 (Version 1)
Quarter: 2013Q1

REPORT INFORMATION
  Report Type: Spontaneous
  Country: BR (occurrence: BR)
  Receive Date: 20130118
  Receipt Date: 20130118
  Transmission Date: 20140127
  Serious: Yes (Death, Other)
  Sender: FDA-Public Use
  Company Number: BR-AMGEN-BRASP2013003655

PATIENT
  Age: 56 Year
  Sex: Female

DRUGS (1)
  1. ENBREL [Suspect]
     Indication: RHEUMATOID ARTHRITIS
     Dosage: 50 MG, WEEKLY
     Route: 058

REACTIONS (6)
  - Death [Fatal]
  - Gallbladder disorder [Unknown]
  - Embolism [Unknown]
  - Gastric haemorrhage [Unknown]
  - Emphysema [Unknown]
  - Post procedural complication [Unknown]
